FAERS Safety Report 23171511 (Version 1)
Quarter: 2023Q4

REPORT INFORMATION
  Report Type: Spontaneous
  Country: AU (occurrence: AU)
  Receive Date: 20231110
  Receipt Date: 20231110
  Transmission Date: 20240110
  Serious: Yes (Death, Other)
  Sender: FDA-Public Use
  Company Number: AU-PFIZER INC-2006135556

PATIENT
  Age: 14 Year
  Sex: Male

DRUGS (2)
  1. ACETAMINOPHEN [Suspect]
     Active Substance: ACETAMINOPHEN
     Indication: Pain
     Dosage: UNK
     Route: 048
  2. MORPHINE HYDROCHLORIDE [Suspect]
     Active Substance: MORPHINE HYDROCHLORIDE
     Indication: Pain
     Dosage: 10 MG
     Route: 040

REACTIONS (6)
  - Obstructive airways disorder [Fatal]
  - Infectious mononucleosis [Fatal]
  - Chronic hepatitis [Unknown]
  - Pulmonary oedema [Unknown]
  - Pulmonary alveolar haemorrhage [Unknown]
  - Unresponsive to stimuli [Unknown]
